FAERS Safety Report 9170928 (Version 3)
Quarter: 2013Q2

REPORT INFORMATION
  Report Type: Spontaneous
  Country: JP (occurrence: JP)
  Receive Date: 20130319
  Receipt Date: 20130522
  Transmission Date: 20140414
  Serious: Yes (Other)
  Sender: FDA-Public Use
  Company Number: JP-TEVA-388229ISR

PATIENT
  Age: 68 Year
  Sex: Male

DRUGS (12)
  1. FUROSEMIDE,TAB,20MG [Suspect]
     Indication: CHEST DISCOMFORT
     Dosage: 20 MILLIGRAM DAILY;
     Route: 048
     Dates: start: 20101002
  2. AMLODIPINE OD TABLETS 5MG [Concomitant]
     Dosage: 5 MILLIGRAM DAILY;
     Route: 048
     Dates: start: 20100921
  3. ARTIST TABLETS [Concomitant]
     Dosage: 2.5 MILLIGRAM DAILY;
     Route: 048
     Dates: start: 20100921
  4. ARTIST TABLETS [Concomitant]
     Dosage: 5 MILLIGRAM DAILY;
     Route: 048
     Dates: start: 20110729
  5. BAYASPIRIN 100MG [Concomitant]
     Dosage: 100 MILLIGRAM DAILY;
     Route: 048
     Dates: start: 20100901
  6. ALDACTONE-A [Concomitant]
     Dosage: 25 MILLIGRAM DAILY;
     Dates: start: 20101002
  7. DIGOSIN [Concomitant]
     Dosage: .125 MILLIGRAM DAILY;
     Dates: start: 20101002
  8. WARFARIN [Concomitant]
     Dosage: 2 MILLIGRAM DAILY;
     Dates: start: 20101002
  9. WARFARIN [Concomitant]
     Dates: start: 20101119
  10. WARFARIN [Concomitant]
     Dosage: 3 MILLIGRAM DAILY;
     Dates: start: 20110311
  11. NU-LOTAN [Concomitant]
     Dates: start: 20111209, end: 20121019
  12. LOSARTAN POTASSIUM [Concomitant]
     Dates: start: 20121019

REACTIONS (1)
  - Platelet count decreased [Recovering/Resolving]
